FAERS Safety Report 7526124-8 (Version None)
Quarter: 2011Q2

REPORT INFORMATION
  Report Type: 
  Country: None (occurrence: None)
  Receive Date: 20110606
  Receipt Date: 20110527
  Transmission Date: 20111010
  Serious: Yes (Hospitalization, Other)
  Sender: FDA-Public Use
  Company Number: US-MERCK-1101USA01040

PATIENT
  Age: 53 Year
  Sex: Female
  Weight: 74 kg

DRUGS (4)
  1. FOSAMAX [Suspect]
     Route: 048
     Dates: start: 20020101, end: 20090101
  2. CYMBALTA [Concomitant]
     Route: 065
     Dates: start: 20000101, end: 20110101
  3. PROVENTIL [Concomitant]
     Route: 065
     Dates: start: 20000101, end: 20110101
  4. FLEXERIL [Concomitant]
     Route: 065
     Dates: start: 20000101, end: 20110101

REACTIONS (19)
  - UTERINE LEIOMYOMA [None]
  - TOOTH DISORDER [None]
  - SCIATICA [None]
  - POSTMENOPAUSAL HAEMORRHAGE [None]
  - GASTROINTESTINAL DISORDER [None]
  - COLON ADENOMA [None]
  - LOW TURNOVER OSTEOPATHY [None]
  - HYPOGLYCAEMIA [None]
  - LYMPHOEDEMA [None]
  - HAEMORRHAGIC ANAEMIA [None]
  - OSTEOPOROSIS [None]
  - MENOPAUSAL SYMPTOMS [None]
  - OSTEOARTHRITIS [None]
  - URINARY RETENTION [None]
  - HYPOTHYROIDISM [None]
  - FRACTURE NONUNION [None]
  - FEMUR FRACTURE [None]
  - CYSTITIS [None]
  - OVARIAN CYST [None]
